FAERS Safety Report 24844584 (Version 2)
Quarter: 2025Q1

REPORT INFORMATION
  Report Type: Report from Study
  Country: CA (occurrence: CA)
  Receive Date: 20250115
  Receipt Date: 20250203
  Transmission Date: 20250409
  Serious: Yes (Hospitalization)
  Sender: SANOFI AVENTIS
  Company Number: CA-SA-2025SA008279

PATIENT
  Age: 82 Year
  Sex: Male

DRUGS (5)
  1. DUPILUMAB [Suspect]
     Active Substance: DUPILUMAB
     Indication: Dermatitis atopic
     Dosage: 300 MG 1 DOSE EVERY 2 WEEK
     Route: 058
     Dates: start: 20241228
  2. DUPILUMAB [Suspect]
     Active Substance: DUPILUMAB
     Dosage: 300 MG 1 DOSE EVERY 2 WEEK
     Route: 058
     Dates: start: 2024
  3. BETADERM [Concomitant]
     Active Substance: BETAMETHASONE VALERATE
     Indication: Product used for unknown indication
     Dates: start: 202301
  4. CLOBETASOL [Concomitant]
     Active Substance: CLOBETASOL
     Indication: Product used for unknown indication
     Dates: start: 202301
  5. PREDNISONE [Concomitant]
     Active Substance: PREDNISONE
     Indication: Product used for unknown indication

REACTIONS (3)
  - General physical health deterioration [Not Recovered/Not Resolved]
  - Dysuria [Unknown]
  - Burns second degree [Unknown]

NARRATIVE: CASE EVENT DATE: 20241201
